FAERS Safety Report 8278374-3 (Version None)
Quarter: 2012Q2

REPORT INFORMATION
  Report Type: 
  Country: None (occurrence: None)
  Receive Date: 20120412
  Receipt Date: 20120409
  Transmission Date: 20120825
  Serious: Yes (Other)
  Sender: FDA-Public Use
  Company Number: US-BAYER-2012-034432

PATIENT
  Age: 50 Year
  Sex: Female

DRUGS (4)
  1. PRAVASTATIN [Concomitant]
  2. METFORMIN HCL [Concomitant]
  3. EXTRA STRENGTH TYLENOL [Concomitant]
  4. BETASERON [Suspect]
     Indication: MULTIPLE SCLEROSIS
     Dosage: 2 MIU, QOD
     Route: 058
     Dates: start: 20120403

REACTIONS (1)
  - VAGINAL HAEMORRHAGE [None]
